FAERS Safety Report 20016636 (Version 1)
Quarter: 2021Q4

REPORT INFORMATION
  Report Type: Spontaneous
  Country: US (occurrence: None)
  Receive Date: 20211104
  Receipt Date: 20211104
  Transmission Date: 20220303
  Serious: Yes (Hospitalization, Other)
  Sender: FDA-Public Use
  Company Number: None

PATIENT
  Age: 76 Year
  Sex: Male
  Weight: 116 kg

DRUGS (10)
  1. NITROPRUSSIDE [Suspect]
     Active Substance: NITROPRUSSIDE
     Indication: Hypertensive emergency
     Dosage: OTHER FREQUENCY : UG/KG/MIN;?
     Route: 041
     Dates: start: 20211102, end: 20211103
  2. ACETAMINOPHEN [Concomitant]
     Active Substance: ACETAMINOPHEN
     Dates: start: 20211103, end: 20211103
  3. CEFTRIAXONE [Concomitant]
     Active Substance: CEFTRIAXONE
     Dates: start: 20211102, end: 20211104
  4. DOXYCYCLINE [Concomitant]
     Active Substance: DOXYCYCLINE
     Dates: start: 20211101, end: 20211104
  5. ESMOLOL [Concomitant]
     Active Substance: ESMOLOL HYDROCHLORIDE
     Dates: start: 20211101, end: 20211104
  6. FUROSEMIDE [Concomitant]
     Active Substance: FUROSEMIDE
     Dates: start: 20211102, end: 20211103
  7. CLEVIDIPINE [Concomitant]
     Active Substance: CLEVIDIPINE
     Dates: start: 20211102, end: 20211103
  8. LORAZEPAM [Concomitant]
     Active Substance: LORAZEPAM
     Dates: start: 20211102, end: 20211104
  9. NICARDIPINE [Concomitant]
     Active Substance: NICARDIPINE
     Dates: start: 20211103, end: 20211104
  10. HALOPERIDOL [Concomitant]
     Active Substance: HALOPERIDOL
     Dates: start: 20211102, end: 20211104

REACTIONS (3)
  - Toxicity to various agents [None]
  - Mental status changes [None]
  - Acute kidney injury [None]

NARRATIVE: CASE EVENT DATE: 20211103
